FAERS Safety Report 7126596-7 (Version None)
Quarter: 2010Q4

REPORT INFORMATION
  Report Type: 
  Country: None (occurrence: None)
  Receive Date: 20101129
  Receipt Date: 20101118
  Transmission Date: 20110411
  Serious: Yes (Hospitalization)
  Sender: FDA-Public Use
  Company Number: DE-GILEAD-2010-0033756

PATIENT
  Sex: Female

DRUGS (4)
  1. RANEXA [Suspect]
     Indication: PRODUCT USED FOR UNKNOWN INDICATION
     Route: 048
     Dates: start: 20100301
  2. RANEXA [Suspect]
     Dates: start: 20101001
  3. PENTAERYTHRITOL TETRANITRATE [Suspect]
     Dates: start: 20100301
  4. PENTAERYTHRITOL TETRANITRATE [Suspect]
     Route: 048
     Dates: start: 20100301, end: 20101001

REACTIONS (3)
  - CIRCULATORY COLLAPSE [None]
  - DIZZINESS [None]
  - HEADACHE [None]
